FAERS Safety Report 17493090 (Version 2)
Quarter: 2020Q1

REPORT INFORMATION
  Report Type: Spontaneous
  Country: CH (occurrence: CH)
  Receive Date: 20200304
  Receipt Date: 20200318
  Transmission Date: 20200409
  Serious: Yes (Death, Hospitalization, Other)
  Sender: FDA-Public Use
  Company Number: CH-LUPIN PHARMACEUTICALS INC.-2020-01074

PATIENT
  Age: 73 Year
  Sex: Female
  Weight: 47 kg

DRUGS (4)
  1. OXYCODONE [Suspect]
     Active Substance: OXYCODONE
     Indication: CANCER PAIN
     Dosage: UNK UNK, PRN
     Route: 048
     Dates: start: 2019, end: 2019
  2. TARGIN [Suspect]
     Active Substance: NALOXONE HYDROCHLORIDE\OXYCODONE HYDROCHLORIDE
     Indication: CANCER PAIN
     Dosage: 1 DOSAGE FORM, BID (EVERY 12 HOURS)
     Route: 048
     Dates: start: 201904, end: 2019
  3. TARGIN [Suspect]
     Active Substance: NALOXONE HYDROCHLORIDE\OXYCODONE HYDROCHLORIDE
     Indication: CANCER PAIN
     Dosage: 1 DOSAGE FORM, BID (EVERY 12 HOURS)
     Route: 048
     Dates: start: 2019, end: 20190801
  4. OXYCODONE [Suspect]
     Active Substance: OXYCODONE
     Dosage: 60 MILLIGRAM, BID (DOSE INCREASED)
     Route: 048
     Dates: start: 2019, end: 2019

REACTIONS (3)
  - Oesophageal hypomotility [Recovered/Resolved]
  - Constipation [Recovered/Resolved]
  - Oesophageal achalasia [Recovered/Resolved]

NARRATIVE: CASE EVENT DATE: 2019
